FAERS Safety Report 17141552 (Version 1)
Quarter: 2019Q4

REPORT INFORMATION
  Report Type: Spontaneous
  Country: US (occurrence: US)
  Receive Date: 20191211
  Receipt Date: 20191211
  Transmission Date: 20200122
  Serious: No
  Sender: FDA-Public Use
  Company Number: US-SA-2019SA341545

PATIENT
  Sex: Male

DRUGS (17)
  1. AMLODIPINE BESYLATE. [Concomitant]
     Active Substance: AMLODIPINE BESYLATE
  2. FOLIC ACID. [Concomitant]
     Active Substance: FOLIC ACID
  3. TAMSULOSIN HCL [Concomitant]
     Active Substance: TAMSULOSIN HYDROCHLORIDE
  4. AMBIEN [Concomitant]
     Active Substance: ZOLPIDEM TARTRATE
  5. ATORVASTATIN CALCIUM. [Concomitant]
     Active Substance: ATORVASTATIN CALCIUM
  6. INVELTYS [Concomitant]
     Active Substance: LOTEPREDNOL ETABONATE
  7. GABAPENTIN. [Concomitant]
     Active Substance: GABAPENTIN
  8. LINZESS [Concomitant]
     Active Substance: LINACLOTIDE
  9. ELIQUIS [Concomitant]
     Active Substance: APIXABAN
  10. DUPIXENT [Suspect]
     Active Substance: DUPILUMAB
     Indication: PRODUCT USED FOR UNKNOWN INDICATION
     Dosage: 300 MG, QOW
     Route: 058
  11. ARNUITY ELLIPTA [Concomitant]
     Active Substance: FLUTICASONE FUROATE
  12. FAMOTIDINE. [Concomitant]
     Active Substance: FAMOTIDINE
  13. OLOPATADINE HCL [Concomitant]
     Active Substance: OLOPATADINE HYDROCHLORIDE
  14. ALBUTEROL SULFATE. [Concomitant]
     Active Substance: ALBUTEROL SULFATE
  15. FUROSEMIDE. [Concomitant]
     Active Substance: FUROSEMIDE
  16. IPRATROPIUM BROMIDE. [Concomitant]
     Active Substance: IPRATROPIUM BROMIDE
  17. PROLENSA [Concomitant]
     Active Substance: BROMFENAC SODIUM

REACTIONS (1)
  - Product dose omission [Unknown]
